FAERS Safety Report 4627637-9 (Version None)
Quarter: 2005Q2

REPORT INFORMATION
  Report Type: 
  Country: None (occurrence: None)
  Receive Date: 20050401
  Receipt Date: 20050401
  Transmission Date: 20051028
  Serious: Yes (Life-Threatening)
  Sender: FDA-Public Use
  Company Number: None

PATIENT
  Age: 29 Year
  Sex: Female
  Weight: 58.9676 kg

DRUGS (1)
  1. ZOLOFT [Suspect]
     Indication: IRRITABILITY
     Dosage: 2 DAILY?
     Dates: start: 20050104, end: 20050404

REACTIONS (15)
  - ABNORMAL BEHAVIOUR [None]
  - ADJUSTMENT DISORDER [None]
  - APATHY [None]
  - FAMILY STRESS [None]
  - FEELING ABNORMAL [None]
  - FLAT AFFECT [None]
  - HOT FLUSH [None]
  - LOSS OF LIBIDO [None]
  - MARITAL PROBLEM [None]
  - MENTAL STATUS CHANGES [None]
  - MOOD ALTERED [None]
  - PARAESTHESIA [None]
  - PERSONALITY CHANGE [None]
  - POLYDIPSIA [None]
  - RELATIONSHIP BREAKDOWN [None]
